FAERS Safety Report 23203048 (Version 1)
Quarter: 2023Q4

REPORT INFORMATION
  Report Type: Other
  Country: AU (occurrence: AU)
  Receive Date: 20231120
  Receipt Date: 20231120
  Transmission Date: 20240110
  Serious: Yes (Hospitalization)
  Sender: FDA-Public Use
  Company Number: AU-DEXPHARM-20232786

PATIENT
  Age: 6 Decade
  Sex: Male

DRUGS (4)
  1. AMITRIPTYLINE [Concomitant]
     Active Substance: AMITRIPTYLINE
     Dosage: NA
  2. ROSUVASTATIN [Concomitant]
     Active Substance: ROSUVASTATIN
     Dosage: NA
  3. METOPROLOL [Concomitant]
     Active Substance: METOPROLOL
     Dosage: NA
  4. PANTOPRAZOLE [Suspect]
     Active Substance: PANTOPRAZOLE
     Indication: Gastrooesophageal reflux disease

REACTIONS (3)
  - Salmonella bacteraemia [Recovering/Resolving]
  - Acute myocardial infarction [Recovering/Resolving]
  - Infective aneurysm [Recovering/Resolving]
